FAERS Safety Report 17996254 (Version 1)
Quarter: 2020Q3

REPORT INFORMATION
  Report Type: Report from Study
  Country: US (occurrence: US)
  Receive Date: 20200708
  Receipt Date: 20200708
  Transmission Date: 20201103
  Serious: Yes (Hospitalization)
  Sender: FDA-Public Use
  Company Number: US-EISAI MEDICAL RESEARCH-EC-2019-050599

PATIENT
  Age: 57 Year
  Sex: Female
  Weight: 55 kg

DRUGS (4)
  1. LISINOPRIL. [Concomitant]
     Active Substance: LISINOPRIL
     Indication: HYPERTENSION
     Dosage: UNKNOWN DOSE AND FREQUENCY
     Dates: start: 201901, end: 201908
  2. PROCHLORPERAZINE. [Concomitant]
     Active Substance: PROCHLORPERAZINE
     Indication: NAUSEA
     Dosage: UNKNOWN DOSE AND FREQUENCY
     Dates: start: 201901
  3. LENVIMA [Suspect]
     Active Substance: LENVATINIB
     Route: 048
     Dates: start: 201905
  4. LENVIMA [Suspect]
     Active Substance: LENVATINIB
     Indication: HEPATOCELLULAR CARCINOMA
     Route: 048
     Dates: start: 20190104, end: 2019

REACTIONS (18)
  - Gastric varices [Unknown]
  - Decreased appetite [Not Recovered/Not Resolved]
  - Fatigue [Not Recovered/Not Resolved]
  - Anal abscess [Unknown]
  - Dysphonia [Recovered/Resolved]
  - Groin pain [Not Recovered/Not Resolved]
  - Nausea [Not Recovered/Not Resolved]
  - Vomiting [Recovered/Resolved]
  - Diarrhoea [Recovering/Resolving]
  - Haematemesis [Unknown]
  - Hypertension [Recovered/Resolved]
  - Hepatic enzyme increased [Not Recovered/Not Resolved]
  - Haematochezia [Unknown]
  - Blister [Not Recovered/Not Resolved]
  - Taste disorder [Not Recovered/Not Resolved]
  - Weight decreased [Recovering/Resolving]
  - Hypothyroidism [Not Recovered/Not Resolved]
  - Early satiety [Not Recovered/Not Resolved]

NARRATIVE: CASE EVENT DATE: 201901
